FAERS Safety Report 25524585 (Version 1)
Quarter: 2025Q3

REPORT INFORMATION
  Report Type: Spontaneous
  Country: CN (occurrence: CN)
  Receive Date: 20250707
  Receipt Date: 20250707
  Transmission Date: 20251020
  Serious: Yes (Other)
  Sender: BAYER HEALTHCARE PHARMACEUTICALS INC.
  Company Number: CN-BAYER-2025A088303

PATIENT
  Age: 69 Year
  Sex: Female

DRUGS (1)
  1. ULTRAVIST [Suspect]
     Active Substance: IOPROMIDE
     Indication: Arteriosclerosis coronary artery
     Dosage: 100 ML, QD
     Route: 042
     Dates: start: 20250605, end: 20250605

REACTIONS (8)
  - Contrast encephalopathy [Recovered/Resolved]
  - Headache [Recovered/Resolved]
  - Dizziness [Recovered/Resolved]
  - Vision blurred [Recovered/Resolved]
  - Delirium [Recovered/Resolved]
  - Head discomfort [Recovered/Resolved]
  - Blood pressure increased [Recovered/Resolved]
  - Respiratory rate increased [None]

NARRATIVE: CASE EVENT DATE: 20250605
